FAERS Safety Report 4980797-2 (Version None)
Quarter: 2006Q2

REPORT INFORMATION
  Report Type: 
  Country: None (occurrence: None)
  Receive Date: 20060418
  Receipt Date: 20060411
  Transmission Date: 20061013
  Serious: Yes (Other)
  Sender: FDA-Public Use
  Company Number: 223450

PATIENT
  Sex: Female

DRUGS (5)
  1. XOLAIR [Suspect]
     Indication: ASTHMA
     Dosage: 375 Q12H, SUBCUTANEOUS
     Route: 058
     Dates: start: 20040318, end: 20060101
  2. XOPENEX [Concomitant]
  3. ALLEGRA [Concomitant]
  4. PULMICORT [Concomitant]
  5. SEREVENT [Concomitant]

REACTIONS (3)
  - ABORTION SPONTANEOUS [None]
  - DRUG EXPOSURE DURING PREGNANCY [None]
  - PREGNANCY [None]
